FAERS Safety Report 8696673 (Version 2)
Quarter: 2013Q2

REPORT INFORMATION
  Report Type: Spontaneous
  Country: US (occurrence: US)
  Receive Date: 20120801
  Receipt Date: 20130523
  Transmission Date: 20140414
  Serious: No
  Sender: FDA-Public Use
  Company Number: US-009507513-1207USA002471

PATIENT
  Sex: 0

DRUGS (1)
  1. SINGULAIR [Suspect]
     Dosage: UNK
     Route: 048
     Dates: start: 2010

REACTIONS (1)
  - Cough [Unknown]
